FAERS Safety Report 4801211-3 (Version None)
Quarter: 2005Q4

REPORT INFORMATION
  Report Type: 
  Country: None (occurrence: None)
  Receive Date: 20051011
  Receipt Date: 20050926
  Transmission Date: 20060501
  Serious: Yes (Hospitalization)
  Sender: FDA-Public Use
  Company Number: US015898

PATIENT
  Age: 36 Year
  Sex: Female

DRUGS (6)
  1. TRISENOX [Suspect]
     Indication: ACUTE PROMYELOCYTIC LEUKAEMIA
     Dosage: 6.93 MG QD INTRAVENOUS DRIP
     Route: 041
     Dates: start: 20050518, end: 20050714
  2. LACTOBACILLUS CASEI [Concomitant]
  3. LENOGRASTIM [Concomitant]
  4. CEFCAPENE PIVOXIL [Concomitant]
  5. GENTAMICIN [Concomitant]
  6. BUFEXAMAC [Concomitant]

REACTIONS (9)
  - BACTERIAL INFECTION [None]
  - BLOOD BILIRUBIN INCREASED [None]
  - C-REACTIVE PROTEIN INCREASED [None]
  - ELECTROCARDIOGRAM QT CORRECTED INTERVAL PROLONGED [None]
  - ELECTROCARDIOGRAM QT PROLONGED [None]
  - JAUNDICE [None]
  - NEUTROPHIL COUNT DECREASED [None]
  - PYREXIA [None]
  - WHITE BLOOD CELL COUNT DECREASED [None]
